FAERS Safety Report 8952853 (Version 2)
Quarter: 2014Q2

REPORT INFORMATION
  Report Type: Spontaneous
  Country: CN (occurrence: CN)
  Receive Date: 20121203
  Receipt Date: 20130820
  Transmission Date: 20141212
  Serious: Yes (Other)
  Sender: FDA-Public Use
  Company Number: PHHY2012CN108563

PATIENT
  Age: 30 Year
  Sex: Male
  Weight: 62 kg

DRUGS (1)
  1. SEBIVO [Suspect]
     Indication: HEPATITIS B
     Dosage: 1 DF, 1 TABLET
     Route: 048
     Dates: start: 20100818, end: 20100919

REACTIONS (2)
  - Blood creatine phosphokinase increased [Recovering/Resolving]
  - Rash [Recovering/Resolving]
